FAERS Safety Report 18617262 (Version 2)
Quarter: 2020Q4

REPORT INFORMATION
  Report Type: Spontaneous
  Country: US (occurrence: US)
  Receive Date: 20201215
  Receipt Date: 20201224
  Transmission Date: 20210114
  Serious: No
  Sender: FDA-Public Use
  Company Number: US-BIOGEN-2020BI00951509

PATIENT
  Sex: Female

DRUGS (5)
  1. AVONEX PEN [Suspect]
     Active Substance: INTERFERON BETA-1A
     Indication: MULTIPLE SCLEROSIS
     Route: 065
     Dates: start: 20171021
  2. AVONEX PEN [Suspect]
     Active Substance: INTERFERON BETA-1A
     Route: 065
     Dates: start: 20090217, end: 20170613
  3. AVONEX PEN [Suspect]
     Active Substance: INTERFERON BETA-1A
  4. TECFIDERA [Suspect]
     Active Substance: DIMETHYL FUMARATE
     Indication: MULTIPLE SCLEROSIS
     Route: 065
     Dates: start: 20170619, end: 20171021
  5. AVONEX PEN [Suspect]
     Active Substance: INTERFERON BETA-1A

REACTIONS (2)
  - Fall [Recovered/Resolved]
  - Incoherent [Not Recovered/Not Resolved]
